FAERS Safety Report 17750381 (Version 6)
Quarter: 2022Q2

REPORT INFORMATION
  Report Type: Spontaneous
  Country: US (occurrence: US)
  Receive Date: 20200506
  Receipt Date: 20220502
  Transmission Date: 20220721
  Serious: No
  Sender: FDA-Public Use
  Company Number: US-PFIZER INC-2019214443

PATIENT
  Age: 63 Year
  Sex: Female

DRUGS (2)
  1. LYRICA [Suspect]
     Active Substance: PREGABALIN
     Indication: Neuropathy peripheral
     Dosage: 300 MG, 2X/DAY (IN THE EVENING 1 TO 3 HOURS BEFORE BEDTIME) (90 DAYS)
     Route: 048
  2. LYRICA [Suspect]
     Active Substance: PREGABALIN
     Indication: Lumbar radiculopathy

REACTIONS (4)
  - Cough [Unknown]
  - Nervousness [Unknown]
  - Anxiety [Unknown]
  - Sight disability [Unknown]
